FAERS Safety Report 6543093-8 (Version None)
Quarter: 2010Q1

REPORT INFORMATION
  Report Type: 
  Country: None (occurrence: None)
  Receive Date: 20100120
  Receipt Date: 20100108
  Transmission Date: 20100710
  Serious: Yes (Hospitalization, Other)
  Sender: FDA-Public Use
  Company Number: PHEH2010US00548

PATIENT
  Sex: Female
  Weight: 101 kg

DRUGS (25)
  1. RECLAST [Suspect]
     Indication: OSTEOPOROSIS
     Dosage: 5 MG ONCE YEARLY
     Dates: start: 20091208, end: 20091208
  2. CALCIUM WITH VITAMIN D [Concomitant]
     Indication: HYPOCALCAEMIA
     Dosage: UNK, UNK
     Route: 048
     Dates: end: 20091215
  3. CALCIUM WITH VITAMIN D [Concomitant]
     Dosage: 600 MG / 400 MG, TID
  4. CELLCEPT [Concomitant]
     Dosage: 1000 MG, BID
     Route: 048
  5. DIOVAN HCT [Concomitant]
     Dosage: 80/12.5 MG, BID
     Route: 048
  6. FENTANYL [Concomitant]
     Dosage: 800 MCG, TID, PRN
     Route: 048
  7. HYDROXYCHLOROQUINE SULFATE [Concomitant]
     Dosage: 400 MG QAM; 200 MG QPM
  8. CLONIDINE [Concomitant]
     Route: 037
  9. LASIX [Concomitant]
     Dosage: 80 MG, QD
  10. LORAZEPAM [Concomitant]
     Dosage: 2 MG TID PRN
     Route: 048
  11. METHADONE [Concomitant]
     Dosage: 20 MG, TID
     Route: 048
  12. MIRALAX [Concomitant]
     Dosage: 17 G, QHS
     Route: 048
  13. POTASSIUM [Concomitant]
     Dosage: UNK
  14. PREDNISONE [Concomitant]
     Dosage: 2.5 MG QAM, 2 MG QPM
     Route: 048
  15. RANITIDINE [Concomitant]
     Dosage: 150 MG, QHS
  16. PLAQUENIL [Concomitant]
     Dosage: 400 MG, QAM, 200 MG QPM
  17. TYLENOL (CAPLET) [Concomitant]
     Dosage: 650 MG, Q 4 HOURS, PRN
  18. ZOFRAN [Concomitant]
     Dosage: 8 MG, TID, PRN
  19. ATIVAN [Concomitant]
     Dosage: 2 MG, TID, PRN
  20. BENADRYL ^ACHE^ [Concomitant]
     Dosage: UNK, PRN
  21. CITRUCEL [Concomitant]
     Dosage: UNK, BID
  22. ZANAFLEX [Concomitant]
     Dosage: 4 TO 8 MG, TID, PRN
  23. TEMAZEPAM [Concomitant]
     Dosage: 60 MG, QHS
  24. PROTONIX [Concomitant]
     Dosage: 40 MG, BID
  25. ASPIRIN [Concomitant]

REACTIONS (16)
  - ARTHRALGIA [None]
  - ASTHENIA [None]
  - BLOOD PRESSURE ABNORMAL [None]
  - BONE PAIN [None]
  - CONCOMITANT DISEASE AGGRAVATED [None]
  - DIARRHOEA [None]
  - DIZZINESS [None]
  - HAEMATOCRIT DECREASED [None]
  - HYPOCALCAEMIA [None]
  - HYPOKALAEMIA [None]
  - HYPOPHOSPHATAEMIA [None]
  - MYALGIA [None]
  - NAUSEA [None]
  - OROPHARYNGEAL PAIN [None]
  - VITAMIN D DEFICIENCY [None]
  - VOMITING [None]
